FAERS Safety Report 6258024-8 (Version None)
Quarter: 2009Q3

REPORT INFORMATION
  Report Type: 
  Country: None (occurrence: None)
  Receive Date: 20090707
  Receipt Date: 20090629
  Transmission Date: 20100115
  Serious: Yes (Other)
  Sender: FDA-Public Use
  Company Number: US-ASTRAZENECA-2009UW18176

PATIENT
  Age: 921 Month
  Sex: Male
  Weight: 99.8 kg

DRUGS (4)
  1. PULMICORT RESPULES [Suspect]
     Indication: ASTHMA
     Route: 055
     Dates: start: 20080801, end: 20090201
  2. ASPIRIN [Concomitant]
     Route: 048
  3. INDERAL [Concomitant]
     Route: 048
  4. PRILOSEC OTC [Concomitant]

REACTIONS (3)
  - DYSPNOEA [None]
  - LUNG LOBECTOMY [None]
  - RASH [None]
